FAERS Safety Report 18344711 (Version 1)
Quarter: 2020Q4

REPORT INFORMATION
  Report Type: Spontaneous
  Country: FR (occurrence: FR)
  Receive Date: 20201005
  Receipt Date: 20201005
  Transmission Date: 20210114
  Serious: Yes (Other)
  Sender: FDA-Public Use
  Company Number: FR-TEVA-2020-FR-1834960

PATIENT
  Age: 79 Year
  Sex: Female
  Weight: 105 kg

DRUGS (10)
  1. TEICOPLANINE MYLAN [Suspect]
     Active Substance: TEICOPLANIN
     Indication: ARTHRITIS INFECTIVE
     Dosage: 700 MG
     Route: 030
     Dates: start: 20200225, end: 20200331
  2. SPIRONOLACTONE. [Concomitant]
     Active Substance: SPIRONOLACTONE
  3. PARACETAMOL [Concomitant]
     Active Substance: ACETAMINOPHEN
  4. LOVENOX [Suspect]
     Active Substance: ENOXAPARIN SODIUM
     Indication: PROPHYLAXIS
     Dosage: 4000 IU
     Route: 058
     Dates: start: 20200220, end: 20200330
  5. ZYMAD [Concomitant]
     Active Substance: CHOLECALCIFEROL
  6. PANTOPRAZOLE [Suspect]
     Active Substance: PANTOPRAZOLE
     Indication: ABDOMINAL PAIN UPPER
     Dosage: 40 MG
     Route: 048
     Dates: start: 20200219, end: 20200330
  7. DOXYCYCLINE. [Concomitant]
     Active Substance: DOXYCYCLINE
  8. FLECTOR [Concomitant]
     Active Substance: DICLOFENAC EPOLAMINE
  9. RAMIPRIL. [Suspect]
     Active Substance: RAMIPRIL
     Indication: HYPERTENSION
     Dosage: 5 MG
     Route: 048
     Dates: start: 20200320, end: 20200325
  10. ACUITEL 20 MG, COMPRIME ENROBE [Suspect]
     Active Substance: QUINAPRIL HYDROCHLORIDE
     Indication: HYPERTENSION
     Dosage: 20 MG
     Route: 048
     Dates: end: 20200320

REACTIONS (2)
  - Rash papular [Recovered/Resolved]
  - Product availability issue [Recovered/Resolved]

NARRATIVE: CASE EVENT DATE: 20200320
